FAERS Safety Report 13472412 (Version 1)
Quarter: 2017Q2

REPORT INFORMATION
  Report Type: Spontaneous
  Country: US (occurrence: US)
  Receive Date: 20170422
  Receipt Date: 20170422
  Transmission Date: 20170830
  Serious: No
  Sender: FDA-Public Use
  Company Number: None

PATIENT
  Age: 25 Year
  Sex: Male

DRUGS (3)
  1. DEXTROAMPHET SACCHARAT, AMPHET ASPARTATE, DEXTROAMPHET SULFATE AND AMPHET SULFAT [Suspect]
     Active Substance: AMPHETAMINE ASPARTATE\AMPHETAMINE SULFATE\DEXTROAMPHETAMINE SACCHARATE\DEXTROAMPHETAMINE SULFATE
     Indication: ATTENTION DEFICIT/HYPERACTIVITY DISORDER
     Dosage: ?          QUANTITY:1 TABLET(S);?
     Route: 048
     Dates: start: 20170420, end: 20170422
  2. ADDERALL [Concomitant]
     Active Substance: AMPHETAMINE ASPARTATE\AMPHETAMINE SULFATE\DEXTROAMPHETAMINE SACCHARATE\DEXTROAMPHETAMINE SULFATE
  3. ENBREL [Concomitant]
     Active Substance: ETANERCEPT

REACTIONS (16)
  - Headache [None]
  - Pruritus [None]
  - Depression [None]
  - Chills [None]
  - Facial spasm [None]
  - Disorientation [None]
  - Nausea [None]
  - Visual impairment [None]
  - Fatigue [None]
  - Hypoaesthesia [None]
  - Hot flush [None]
  - Mood swings [None]
  - Chest pain [None]
  - Product quality issue [None]
  - Hyperhidrosis [None]
  - Decreased appetite [None]

NARRATIVE: CASE EVENT DATE: 20170420
